FAERS Safety Report 4556662-1 (Version None)
Quarter: 2005Q1

REPORT INFORMATION
  Report Type: 
  Country: None (occurrence: None)
  Receive Date: 20050118
  Receipt Date: 20050107
  Transmission Date: 20050727
  Serious: Yes (Hospitalization)
  Sender: FDA-Public Use
  Company Number: HQWYE508511JAN05

PATIENT
  Age: 44 Year
  Sex: Male
  Weight: 104.8 kg

DRUGS (3)
  1. RAPAMUNE [Suspect]
     Dosage: 5 MG 1X PER 1 DAY, ORAL
     Route: 048
     Dates: start: 20041229
  2. PROGRAF [Suspect]
     Dosage: 2 MG 2X PER 1 DAY, ORAL
     Route: 048
     Dates: start: 20050103
  3. CYCLOSPORINE [Concomitant]

REACTIONS (1)
  - TRANSPLANT REJECTION [None]
